FAERS Safety Report 19046513 (Version 2)
Quarter: 2021Q1

REPORT INFORMATION
  Report Type: Spontaneous
  Country: US (occurrence: US)
  Receive Date: 20210323
  Receipt Date: 20210331
  Transmission Date: 20210420
  Serious: Yes (Hospitalization)
  Sender: FDA-Public Use
  Company Number: US-CELGENEUS-USA-20210305099

PATIENT
  Age: 69 Year
  Sex: Male
  Weight: 103 kg

DRUGS (6)
  1. ELIQUIS [Concomitant]
     Active Substance: APIXABAN
     Indication: THROMBOSIS PROPHYLAXIS
  2. REVLIMID [Suspect]
     Active Substance: LENALIDOMIDE
     Indication: ANTI-MYELIN-ASSOCIATED GLYCOPROTEIN ASSOCIATED POLYNEUROPATHY
     Dosage: 25 MILLIGRAM
     Route: 048
     Dates: start: 20210205, end: 20210314
  3. REVLIMID [Suspect]
     Active Substance: LENALIDOMIDE
     Indication: MONOCLONAL GAMMOPATHY
  4. MULTAQ [Concomitant]
     Active Substance: DRONEDARONE
     Indication: PRODUCT USED FOR UNKNOWN INDICATION
     Dosage: 800 MILLIGRAM
     Route: 065
  5. ELIQUIS [Concomitant]
     Active Substance: APIXABAN
     Indication: ATRIAL FIBRILLATION
     Dosage: 10 MILLIGRAM
     Route: 065
  6. REVLIMID [Suspect]
     Active Substance: LENALIDOMIDE
     Indication: OFF LABEL USE

REACTIONS (4)
  - Febrile neutropenia [Recovered/Resolved with Sequelae]
  - Rash [Recovering/Resolving]
  - Pneumonia [Recovered/Resolved]
  - Thrombocytopenia [Recovered/Resolved with Sequelae]

NARRATIVE: CASE EVENT DATE: 20210314
